FAERS Safety Report 10089122 (Version 1)
Quarter: 2014Q2

REPORT INFORMATION
  Report Type: Spontaneous
  Country: US (occurrence: US)
  Receive Date: 20140421
  Receipt Date: 20140421
  Transmission Date: 20141212
  Serious: No
  Sender: FDA-Public Use
  Company Number: US-DRREDDYS-USA/USA/14/0037242

PATIENT
  Age: 31 Year
  Sex: Female

DRUGS (1)
  1. ZENATANE [Suspect]
     Indication: PRODUCT USED FOR UNKNOWN INDICATION
     Route: 065
     Dates: start: 201304, end: 201309

REACTIONS (3)
  - Purpura [Recovering/Resolving]
  - Epistaxis [Unknown]
  - Liver function test abnormal [Unknown]
